FAERS Safety Report 4649862-3 (Version None)
Quarter: 2005Q2

REPORT INFORMATION
  Report Type: 
  Country: None (occurrence: None)
  Receive Date: 20050428
  Receipt Date: 20050415
  Transmission Date: 20051028
  Serious: Yes (Other)
  Sender: FDA-Public Use
  Company Number: 2005061576

PATIENT
  Age: 58 Year
  Sex: Male

DRUGS (2)
  1. BEXTRA [Suspect]
     Indication: SCROTAL DISORDER
     Dosage: (40 MG, 1 IN 1 D), ORAL
     Route: 048
     Dates: start: 20041201
  2. ANTIPHYPERTENSIVES (ANTIHYPERTENSIVES) [Concomitant]

REACTIONS (2)
  - CEREBROVASCULAR ACCIDENT [None]
  - FURUNCLE [None]
